FAERS Safety Report 10522691 (Version 3)
Quarter: 2015Q1

REPORT INFORMATION
  Report Type: Report from Study
  Country: ES (occurrence: ES)
  Receive Date: 20141016
  Receipt Date: 20150226
  Transmission Date: 20150720
  Serious: Yes (Death, Hospitalization, Other)
  Sender: FDA-Public Use
  Company Number: ES-MYLANLABS-2014SP004590

PATIENT

DRUGS (16)
  1. FLUDARABINE [Suspect]
     Active Substance: FLUDARABINE PHOSPHATE
     Indication: ACUTE LYMPHOCYTIC LEUKAEMIA
     Dosage: 50 MG, CYCLE
     Route: 042
     Dates: start: 20140708, end: 20140712
  2. NEUPOGEN [Suspect]
     Active Substance: FILGRASTIM
     Indication: PRODUCT USED FOR UNKNOWN INDICATION
     Dosage: 300 MG, CYCLE
     Route: 058
     Dates: start: 20140707, end: 20140709
  3. PALONOSETRON HYDROCHLORIDE [Concomitant]
     Active Substance: PALONOSETRON HYDROCHLORIDE
     Indication: VOMITING
     Dosage: 250 ?G, UNK
     Route: 042
     Dates: start: 20140707, end: 20140709
  4. BACTRIM [Concomitant]
     Active Substance: SULFAMETHOXAZOLE\TRIMETHOPRIM
     Indication: ANTIFUNGAL PROPHYLAXIS
     Route: 048
     Dates: start: 20140707
  5. ACICLOVIR [Concomitant]
     Active Substance: ACYCLOVIR
     Indication: ANTIVIRAL PROPHYLAXIS
     Dosage: 400 MG, BID
     Route: 048
     Dates: start: 20140707
  6. NEUPOGEN [Suspect]
     Active Substance: FILGRASTIM
     Dates: start: 20140721, end: 20140802
  7. CIPROFLOXACIN. [Concomitant]
     Active Substance: CIPROFLOXACIN
     Indication: PROPHYLAXIS
     Dosage: 500 MG, QD
     Route: 048
     Dates: start: 20140707, end: 20140713
  8. CYTARABINE. [Suspect]
     Active Substance: CYTARABINE
     Indication: ACUTE LYMPHOCYTIC LEUKAEMIA
     Dosage: 3.4 G, CYCLE
     Route: 042
     Dates: start: 20140707, end: 20140712
  9. POSACONAZOLE [Concomitant]
     Active Substance: POSACONAZOLE
     Indication: ANTIFUNGAL PROPHYLAXIS
     Dosage: 200 MG, TID
     Route: 048
     Dates: start: 20140707, end: 20140723
  10. DEXAMETHASONE. [Concomitant]
     Active Substance: DEXAMETHASONE
     Indication: PROPHYLAXIS
     Dosage: 4 MG, QD
     Route: 048
     Dates: start: 20140707, end: 20140720
  11. RANITIDINE [Concomitant]
     Active Substance: RANITIDINE\RANITIDINE HYDROCHLORIDE
     Indication: PROPHYLAXIS
     Dosage: 150 MG, BID
     Route: 048
     Dates: start: 20140707
  12. METOCLOPRAMIDE HYDROCHLORIDE. [Concomitant]
     Active Substance: METOCLOPRAMIDE HYDROCHLORIDE
     Indication: VOMITING
     Dosage: 10 MG, TID
     Dates: start: 20140707, end: 20140717
  13. MAXIDEX                            /00207701/ [Concomitant]
     Indication: PROPHYLAXIS
     Dates: start: 20140707, end: 20140716
  14. PYRIDOXINE HYDROCHLORIDE. [Concomitant]
     Active Substance: PYRIDOXINE HYDROCHLORIDE
     Indication: PROPHYLAXIS
     Dosage: 300 MG, UNK
     Route: 042
     Dates: start: 20140707, end: 20140712
  15. PARACETAMOL [Concomitant]
     Active Substance: ACETAMINOPHEN
     Indication: PRODUCT USED FOR UNKNOWN INDICATION
     Dosage: 1 G, TID
     Route: 042
     Dates: start: 20140707
  16. TOBRAMYCIN. [Concomitant]
     Active Substance: TOBRAMYCIN
     Indication: BACTERIAL INFECTION
     Dates: start: 20140712, end: 20140715

REACTIONS (2)
  - Multi-organ failure [Fatal]
  - Febrile neutropenia [Recovered/Resolved]

NARRATIVE: CASE EVENT DATE: 20140713
